FAERS Safety Report 11199044 (Version 1)
Quarter: 2015Q2

REPORT INFORMATION
  Report Type: Spontaneous
  Country: FR (occurrence: FR)
  Receive Date: 20150618
  Receipt Date: 20150618
  Transmission Date: 20150821
  Serious: Yes (Hospitalization, Other)
  Sender: FDA-Public Use
  Company Number: FR-BAYER-2015-326757

PATIENT
  Age: 73 Year
  Sex: Male

DRUGS (2)
  1. CLOPIDOGREL [Interacting]
     Active Substance: CLOPIDOGREL BISULFATE
  2. ACETYLSALICYLIC ACID({=100 MG) [Suspect]
     Active Substance: ASPIRIN
     Dosage: UNK

REACTIONS (7)
  - Intestinal ischaemia [Recovered/Resolved]
  - Mesenteric arterial occlusion [Recovered/Resolved]
  - Labelled drug-drug interaction medication error [None]
  - Thrombosis in device [Recovered/Resolved]
  - Haematuria [None]
  - Coeliac artery stenosis [Recovered/Resolved]
  - Mesenteric artery thrombosis [Recovered/Resolved]
